FAERS Safety Report 6277648-5 (Version None)
Quarter: 2009Q3

REPORT INFORMATION
  Report Type: 
  Country: None (occurrence: None)
  Receive Date: 20090720
  Receipt Date: 20090709
  Transmission Date: 20100115
  Serious: Yes (Hospitalization)
  Sender: FDA-Public Use
  Company Number: ADR5952009

PATIENT
  Age: 70 Year
  Sex: Male

DRUGS (2)
  1. SIMVASTATIN [Suspect]
     Indication: HYPERCHOLESTEROLAEMIA
  2. PREDNISOLON ^DAK^ (PREDNISOLONE) [Concomitant]

REACTIONS (2)
  - GASTRIC ULCER [None]
  - POLYMYOSITIS [None]
